FAERS Safety Report 19241905 (Version 6)
Quarter: 2021Q2

REPORT INFORMATION
  Report Type: Report from Study
  Country: US (occurrence: US)
  Receive Date: 20210511
  Receipt Date: 20210626
  Transmission Date: 20210717
  Serious: Yes (Other)
  Sender: FDA-Public Use
  Company Number: NVSC2021US105691

PATIENT
  Age: 54 Year
  Sex: Female

DRUGS (2)
  1. MAYZENT [Suspect]
     Active Substance: SIPONIMOD
     Dosage: 2 MG, QD
     Route: 048
  2. MAYZENT [Suspect]
     Active Substance: SIPONIMOD
     Indication: PRODUCT USED FOR UNKNOWN INDICATION
     Dosage: 0.25 MG
     Route: 048
     Dates: start: 20210509

REACTIONS (9)
  - Petit mal epilepsy [Unknown]
  - Feeling abnormal [Recovered/Resolved]
  - Seizure [Unknown]
  - Balance disorder [Unknown]
  - Fall [Unknown]
  - Feeling jittery [Recovered/Resolved]
  - Abnormal behaviour [Recovered/Resolved]
  - Limb injury [Unknown]
  - Asthenia [Unknown]

NARRATIVE: CASE EVENT DATE: 20210509
